FAERS Safety Report 18354465 (Version 1)
Quarter: 2020Q4

REPORT INFORMATION
  Report Type: Spontaneous
  Country: AT (occurrence: AT)
  Receive Date: 20201007
  Receipt Date: 20201007
  Transmission Date: 20210114
  Serious: Yes (Other)
  Sender: FDA-Public Use
  Company Number: AT-BAUSCH-BL-2020-027971

PATIENT
  Age: 70 Year
  Sex: Male

DRUGS (8)
  1. MYCOPHENOLATE MOFETIL. [Concomitant]
     Active Substance: MYCOPHENOLATE MOFETIL
     Indication: IMMUNOSUPPRESSION
  2. CMV-IGG [Concomitant]
     Indication: CYTOMEGALOVIRUS INFECTION
  3. GANCICLOVIR. [Suspect]
     Active Substance: GANCICLOVIR
     Indication: CYTOMEGALOVIRUS INFECTION
     Route: 065
  4. TACROLIMUS. [Concomitant]
     Active Substance: TACROLIMUS
     Indication: IMMUNOSUPPRESSION
  5. TACROLIMUS. [Concomitant]
     Active Substance: TACROLIMUS
     Indication: CYTOMEGALOVIRUS INFECTION
  6. CORTISONE [Concomitant]
     Active Substance: CORTISONE
     Indication: IMMUNOSUPPRESSION
  7. MYCOPHENOLATE MOFETIL. [Concomitant]
     Active Substance: MYCOPHENOLATE MOFETIL
     Indication: CYTOMEGALOVIRUS INFECTION
  8. CORTISONE [Concomitant]
     Active Substance: CORTISONE
     Indication: CYTOMEGALOVIRUS INFECTION

REACTIONS (1)
  - Leukopenia [Unknown]
